FAERS Safety Report 8570559-1 (Version None)
Quarter: 2012Q3

REPORT INFORMATION
  Report Type: 
  Country: None (occurrence: None)
  Receive Date: 20120803
  Receipt Date: 20120730
  Transmission Date: 20120928
  Serious: Yes (Hospitalization, Disabling)
  Sender: FDA-Public Use
  Company Number: US-ABBOTT-12P-163-0963162-00

PATIENT
  Sex: Female
  Weight: 54.48 kg

DRUGS (6)
  1. DRONABINOL [Suspect]
     Indication: IMPAIRED GASTRIC EMPTYING
  2. DRONABINOL [Suspect]
     Indication: NAUSEA
     Dates: start: 20080101
  3. DRONABINOL [Suspect]
     Indication: VOMITING
  4. EMEND [Suspect]
     Indication: VOMITING
  5. EMEND [Suspect]
     Indication: IMPAIRED GASTRIC EMPTYING
  6. EMEND [Suspect]
     Indication: NAUSEA
     Dates: start: 20080101

REACTIONS (3)
  - CEREBROVASCULAR ACCIDENT [None]
  - OFF LABEL USE [None]
  - DISABILITY [None]
